FAERS Safety Report 16882180 (Version 1)
Quarter: 2019Q4

REPORT INFORMATION
  Report Type: Spontaneous
  Country: US (occurrence: US)
  Receive Date: 20191003
  Receipt Date: 20191003
  Transmission Date: 20200122
  Serious: No
  Sender: FDA-Public Use
  Company Number: US-ALNYLAM PHARMACEUTICALS, INC.-ALN-2019-000235

PATIENT
  Sex: Female

DRUGS (1)
  1. ONPATTRO [Suspect]
     Active Substance: PATISIRAN SODIUM
     Indication: HEREDITARY NEUROPATHIC AMYLOIDOSIS
     Dosage: UNK
     Route: 042
     Dates: end: 201805

REACTIONS (6)
  - Pyrexia [Unknown]
  - Malaise [Unknown]
  - Flushing [Unknown]
  - Infusion related reaction [Unknown]
  - Influenza like illness [Unknown]
  - Abdominal discomfort [Unknown]
